FAERS Safety Report 14934942 (Version 1)
Quarter: 2018Q2

REPORT INFORMATION
  Report Type: Spontaneous
  Country: US (occurrence: US)
  Receive Date: 20180524
  Receipt Date: 20180524
  Transmission Date: 20180711
  Serious: No
  Sender: FDA-Public Use
  Company Number: US-TEVA-2018-US-895671

PATIENT

DRUGS (1)
  1. AMPHETAMINE W/DEXTROAMPHETAMINE [Suspect]
     Active Substance: AMPHETAMINE SULFATE\DEXTROAMPHETAMINE

REACTIONS (9)
  - Somnolence [Unknown]
  - Feeling abnormal [Unknown]
  - Apathy [Unknown]
  - Depression [Unknown]
  - Disturbance in attention [Unknown]
  - Dyspepsia [Unknown]
  - Fatigue [Unknown]
  - Abdominal discomfort [Unknown]
  - Nausea [Unknown]
